FAERS Safety Report 18118349 (Version 4)
Quarter: 2021Q3

REPORT INFORMATION
  Report Type: Spontaneous
  Country: US (occurrence: US)
  Receive Date: 20200806
  Receipt Date: 20210830
  Transmission Date: 20211014
  Serious: No
  Sender: FDA-Public Use
  Company Number: NVSC2020US212403

PATIENT
  Sex: Female
  Weight: 80.7 kg

DRUGS (1)
  1. ADAKVEO [Suspect]
     Active Substance: CRIZANLIZUMAB-TMCA
     Indication: SICKLE CELL DISEASE
     Dosage: 400 MG, UNKNOWN (100MG/VIAL)
     Route: 042
     Dates: start: 20200708, end: 20200708

REACTIONS (2)
  - Maternal exposure during pregnancy [Unknown]
  - Amenorrhoea [Unknown]
